FAERS Safety Report 11871747 (Version 2)
Quarter: 2016Q1

REPORT INFORMATION
  Report Type: Spontaneous
  Country: JP (occurrence: JP)
  Receive Date: 20151228
  Receipt Date: 20160128
  Transmission Date: 20160526
  Serious: Yes (Other)
  Sender: FDA-Public Use
  Company Number: JP-GUERBET LLC-1045922

PATIENT
  Age: 70 Year
  Sex: Male

DRUGS (2)
  1. EPIRUBICIN [Concomitant]
     Active Substance: EPIRUBICIN
  2. LIPIODOL [Suspect]
     Active Substance: ETHIODIZED OIL
     Indication: PRODUCT USED FOR UNKNOWN INDICATION
     Route: 013

REACTIONS (2)
  - Infusion site extravasation [None]
  - Extravasation [Unknown]
